FAERS Safety Report 4894826-8 (Version None)
Quarter: 2006Q1

REPORT INFORMATION
  Report Type: 
  Country: None (occurrence: None)
  Receive Date: 20060127
  Receipt Date: 20060127
  Transmission Date: 20060701
  Serious: Yes (Life-Threatening, Hospitalization, Disabling, Other)
  Sender: FDA-Public Use
  Company Number: None

PATIENT
  Age: 51 Year
  Sex: Female
  Weight: 116.5744 kg

DRUGS (6)
  1. CORICIDIN D SRT [Suspect]
     Indication: NASOPHARYNGITIS
     Dosage: ORAL
     Route: 048
  2. TAVIST-D [Concomitant]
  3. COMTREX [Concomitant]
  4. TRIAMINIC SRT [Concomitant]
  5. ANTIDEPRESSANTS [Concomitant]
  6. ANTHYPERTENSIVE AGENT [Concomitant]

REACTIONS (13)
  - BORDERLINE PERSONALITY DISORDER [None]
  - CEREBRAL HAEMORRHAGE [None]
  - CEREBROVASCULAR ACCIDENT [None]
  - DEPRESSED LEVEL OF CONSCIOUSNESS [None]
  - DIZZINESS [None]
  - FALL [None]
  - GAIT DISTURBANCE [None]
  - INJURY [None]
  - NAUSEA [None]
  - PANCREATITIS ACUTE [None]
  - PANCREATITIS CHRONIC [None]
  - PNEUMONIA [None]
  - VOMITING [None]
